FAERS Safety Report 8477951-4 (Version None)
Quarter: 2012Q2

REPORT INFORMATION
  Report Type: 
  Country: None (occurrence: None)
  Receive Date: 20120629
  Receipt Date: 20120619
  Transmission Date: 20120825
  Serious: Yes (Other)
  Sender: FDA-Public Use
  Company Number: US-PFIZER INC-2012137176

PATIENT
  Sex: Male
  Weight: 67.07 kg

DRUGS (10)
  1. MS CONTIN [Suspect]
     Indication: PAIN
     Dosage: 2 MG, UNK
     Route: 048
     Dates: start: 20120401
  2. MULTI-VITAMINS [Concomitant]
     Dosage: UNK
  3. DIGESTIVE ENZYMES [Concomitant]
     Dosage: UNK
  4. LEUPROLIDE ACETATE [Concomitant]
     Dosage: UNK
  5. CALCIUM CARBONATE [Concomitant]
     Dosage: UNK
  6. HYDROMORPHONE [Concomitant]
     Dosage: UNK
  7. PROVENGE [Suspect]
     Indication: PROSTATE CANCER
     Dosage: 250 ML,UNK
     Route: 042
     Dates: start: 20120329, end: 20120329
  8. DEXAMETHASONE SODIUM PHOSPHATE [Suspect]
     Indication: PRODUCT USED FOR UNKNOWN INDICATION
     Dosage: UNK
     Route: 065
  9. OMEPRAZOLE [Concomitant]
     Dosage: UNK
  10. VICODIN [Concomitant]
     Dosage: UNK

REACTIONS (6)
  - ATELECTASIS [None]
  - SINUS TACHYCARDIA [None]
  - DELIRIUM [None]
  - HYPOXIA [None]
  - THROMBOCYTOPENIA [None]
  - ANAEMIA [None]
